FAERS Safety Report 5053855-4 (Version None)
Quarter: 2006Q3

REPORT INFORMATION
  Report Type: 
  Country: None (occurrence: None)
  Receive Date: 20060718
  Receipt Date: 20031006
  Transmission Date: 20061208
  Serious: Yes (Life-Threatening, Hospitalization, Other)
  Sender: FDA-Public Use
  Company Number: 142712

PATIENT
  Age: 52 Year
  Sex: Male
  Weight: 87 kg

DRUGS (7)
  1. IMIGRAN NASAL SPRAY [Suspect]
     Indication: MIGRAINE
     Dosage: 1UNIT SINGLE DOSE
     Route: 045
     Dates: start: 20030924
  2. ASCO TOP [Suspect]
     Indication: MIGRAINE
     Dosage: 2.5MG UNKNOWN
     Route: 065
     Dates: start: 20030924
  3. VIOXX [Suspect]
     Indication: OSTEOARTHRITIS
     Dosage: 50MG PER DAY
     Route: 048
     Dates: start: 20030921, end: 20030929
  4. ZOLMITRIPTAN [Suspect]
     Indication: MIGRAINE
     Route: 065
     Dates: end: 20030901
  5. SPASMO CIBALGIN SUPP [Concomitant]
     Indication: MIGRAINE
     Dosage: 1SUP SINGLE DOSE
     Route: 054
     Dates: start: 20030924
  6. ACETAMINOPHEN [Concomitant]
     Route: 065
     Dates: start: 20030923
  7. PROPRANOLOL [Concomitant]
     Indication: MIGRAINE
     Route: 065
     Dates: start: 20030701

REACTIONS (8)
  - ABDOMINAL ADHESIONS [None]
  - ABDOMINAL PAIN [None]
  - ABDOMINAL PAIN UPPER [None]
  - BACK PAIN [None]
  - C-REACTIVE PROTEIN INCREASED [None]
  - MESENTERIC ARTERY STENOSIS [None]
  - MIGRAINE [None]
  - WEIGHT DECREASED [None]
